FAERS Safety Report 5070426-4 (Version None)
Quarter: 2006Q3

REPORT INFORMATION
  Report Type: 
  Country: None (occurrence: None)
  Receive Date: 20060714
  Receipt Date: 20060417
  Transmission Date: 20061208
  Serious: No
  Sender: FDA-Public Use
  Company Number: 2006SP001707

PATIENT
  Age: 96 Year
  Sex: Male
  Weight: 63.5036 kg

DRUGS (5)
  1. LUNESTA [Suspect]
     Indication: INITIAL INSOMNIA
     Dosage: SEE IMAGE
     Route: 048
     Dates: start: 20060101, end: 20060414
  2. LUNESTA [Suspect]
     Indication: INITIAL INSOMNIA
     Dosage: SEE IMAGE
     Route: 048
     Dates: start: 20060415
  3. GLUCOTROL [Concomitant]
  4. DOXAZOSIN MESYLATE [Concomitant]
  5. COLACE [Concomitant]

REACTIONS (2)
  - DRUG INEFFECTIVE [None]
  - INSOMNIA [None]
